FAERS Safety Report 10341882 (Version 1)
Quarter: 2014Q3

REPORT INFORMATION
  Report Type: Spontaneous
  Country: US (occurrence: None)
  Receive Date: 20140724
  Receipt Date: 20140724
  Transmission Date: 20150326
  Serious: No
  Sender: FDA-Public Use
  Company Number: None

PATIENT
  Age: 58 Year
  Sex: Male

DRUGS (6)
  1. PENTASA [Concomitant]
     Active Substance: MESALAMINE
  2. HUMIRA [Suspect]
     Active Substance: ADALIMUMAB
     Indication: CROHN^S DISEASE
     Dosage: 40MG ?EVERY OTHER WEEK ?SUBQ.
     Dates: start: 20120707
  3. OXYCODONE [Concomitant]
     Active Substance: OXYCODONE
  4. VITAMIN SUPPLEMENT [Concomitant]
     Active Substance: VITAMINS
  5. LYRICA [Concomitant]
     Active Substance: PREGABALIN
  6. PRILOSEC [Concomitant]
     Active Substance: OMEPRAZOLE MAGNESIUM

REACTIONS (1)
  - Oesophageal carcinoma [None]

NARRATIVE: CASE EVENT DATE: 20140723
